FAERS Safety Report 17985429 (Version 1)
Quarter: 2020Q3

REPORT INFORMATION
  Report Type: Spontaneous
  Country: US (occurrence: US)
  Receive Date: 20200706
  Receipt Date: 20200706
  Transmission Date: 20201103
  Serious: Yes (Other)
  Sender: FDA-Public Use
  Company Number: US-GILEAD-2020-0479043

PATIENT
  Age: 81 Year
  Sex: Male
  Weight: 76 kg

DRUGS (13)
  1. FAMOTIDINE. [Concomitant]
     Active Substance: FAMOTIDINE
  2. FLONASE [Concomitant]
     Active Substance: FLUTICASONE PROPIONATE
  3. MELATONIN [Concomitant]
     Active Substance: MELATONIN
  4. PROMETHAZINE WITH CODEINE [Concomitant]
     Active Substance: CODEINE PHOSPHATE\PROMETHAZINE HYDROCHLORIDE
  5. OXYMETAZOLINE [Concomitant]
     Active Substance: OXYMETAZOLINE
  6. ZINC SULFATE. [Concomitant]
     Active Substance: ZINC SULFATE
  7. CHOLECALCIFEROL [Concomitant]
     Active Substance: CHOLECALCIFEROL
  8. LORATADINE. [Concomitant]
     Active Substance: LORATADINE
  9. REMDESIVIR. [Suspect]
     Active Substance: REMDESIVIR
     Indication: COVID-19
     Dosage: 100 MG, QD
     Route: 042
     Dates: start: 20200628, end: 20200630
  10. ALBUTEROL HFA [Concomitant]
     Active Substance: ALBUTEROL SULFATE
  11. ASCORBATE DE SODIUM [Concomitant]
  12. ENOXAPARIN [Concomitant]
     Active Substance: ENOXAPARIN
  13. INSULIN [Concomitant]
     Active Substance: INSULIN NOS

REACTIONS (1)
  - Bradycardia [Unknown]

NARRATIVE: CASE EVENT DATE: 20200630
